FAERS Safety Report 10897726 (Version 1)
Quarter: 2015Q1

REPORT INFORMATION
  Report Type: Spontaneous
  Country: US (occurrence: US)
  Receive Date: 20150309
  Receipt Date: 20150309
  Transmission Date: 20150721
  Serious: No
  Sender: FDA-Public Use
  Company Number: US-AMGEN-USASP2015020466

PATIENT

DRUGS (1)
  1. BLINCYTO [Suspect]
     Active Substance: BLINATUMOMAB
     Indication: ACUTE LYMPHOCYTIC LEUKAEMIA
     Dosage: 28 MUG, UNK( 24 HOUR INFUSION WITH 24 HOUR BAG CHANGE)
     Route: 042
     Dates: start: 20150219

REACTIONS (1)
  - Infusion site haemorrhage [Not Recovered/Not Resolved]

NARRATIVE: CASE EVENT DATE: 20150225
